FAERS Safety Report 6435987-9 (Version None)
Quarter: 2009Q4

REPORT INFORMATION
  Report Type: 
  Country: None (occurrence: None)
  Receive Date: 20091111
  Receipt Date: 20091102
  Transmission Date: 20100525
  Serious: Yes (Hospitalization, Other)
  Sender: FDA-Public Use
  Company Number: JP-PFIZER INC-2009293746

PATIENT
  Age: 75 Year
  Sex: Female

DRUGS (1)
  1. AZULFIDINE [Suspect]
     Indication: RHEUMATOID ARTHRITIS
     Dosage: UNK
     Route: 048
     Dates: start: 20090914, end: 20091014

REACTIONS (3)
  - PLEURAL EFFUSION [None]
  - PLEURISY [None]
  - PNEUMONIA [None]
